FAERS Safety Report 11109398 (Version 1)
Quarter: 2015Q2

REPORT INFORMATION
  Report Type: Spontaneous
  Country: SK (occurrence: None)
  Receive Date: 20150511
  Receipt Date: 20150511
  Transmission Date: 20150821
  Serious: No
  Sender: FDA-Public Use
  Company Number: 1504SVK004863

PATIENT

DRUGS (1)
  1. CEDAX [Suspect]
     Active Substance: CEFTIBUTEN DIHYDRATE
     Indication: SINUSITIS
     Dosage: UNK, ORAL
     Route: 048

REACTIONS (1)
  - Drug ineffective [None]
